FAERS Safety Report 6784379-1 (Version None)
Quarter: 2010Q2

REPORT INFORMATION
  Report Type: 
  Country: None (occurrence: None)
  Receive Date: 20100622
  Receipt Date: 20100609
  Transmission Date: 20101027
  Serious: Yes (Other)
  Sender: FDA-Public Use
  Company Number: TR-JNJFOC-20100606214

PATIENT
  Age: 16 Year
  Sex: Female

DRUGS (1)
  1. RISPERIDONE [Suspect]
     Indication: DISSOCIATIVE DISORDER
     Route: 065

REACTIONS (2)
  - BIPOLAR I DISORDER [None]
  - MANIA [None]
